FAERS Safety Report 11894590 (Version 1)
Quarter: 2016Q1

REPORT INFORMATION
  Report Type: Spontaneous
  Country: US (occurrence: None)
  Receive Date: 20160106
  Receipt Date: 20160106
  Transmission Date: 20160526
  Serious: Yes (Disabling, Other)
  Sender: FDA-Public Use
  Company Number: None

PATIENT
  Age: 71 Year
  Sex: Female
  Weight: 117.94 kg

DRUGS (38)
  1. MUSCLE CREAM [Concomitant]
  2. FOLIC ACID. [Concomitant]
     Active Substance: FOLIC ACID
  3. METHADONE [Concomitant]
     Active Substance: METHADONE HYDROCHLORIDE
  4. PHENERGAN [Concomitant]
     Active Substance: PROMETHAZINE HYDROCHLORIDE
  5. TIMOLOL. [Concomitant]
     Active Substance: TIMOLOL
  6. PONETHYLENE GLUCOL [Concomitant]
  7. NORVASC [Concomitant]
     Active Substance: AMLODIPINE BESYLATE
  8. PENICILLIN [Concomitant]
     Active Substance: PENICILLIN
  9. PREDNISONE. [Concomitant]
     Active Substance: PREDNISONE
  10. METOPROLOL. [Concomitant]
     Active Substance: METOPROLOL
  11. ROPINOPRIL [Concomitant]
  12. VITAMIN B-20 [Concomitant]
  13. LILACTIN [Concomitant]
  14. STATINS [Concomitant]
     Active Substance: UNSPECIFIED INGREDIENT
  15. ERGOCALCIFEROL. [Concomitant]
     Active Substance: ERGOCALCIFEROL
  16. KEPPRA [Concomitant]
     Active Substance: LEVETIRACETAM
  17. SALINE ORAL OTC [Concomitant]
     Active Substance: SODIUM CHLORIDE
  18. ARTHRITIS CREAM [Concomitant]
  19. ALBUTEROL. [Concomitant]
     Active Substance: ALBUTEROL
  20. LOTRISONE [Concomitant]
     Active Substance: BETAMETHASONE DIPROPIONATE\CLOTRIMAZOLE
  21. ONDANSETRON [Concomitant]
     Active Substance: ONDANSETRON
  22. QUETIAPINE [Concomitant]
     Active Substance: QUETIAPINE
  23. HEATING PAD [Concomitant]
  24. NITROGLYCERIN. [Concomitant]
     Active Substance: NITROGLYCERIN
  25. PROMETHAZINE [Concomitant]
     Active Substance: PROMETHAZINE\PROMETHAZINE HYDROCHLORIDE
  26. OMEPRAZOLE. [Concomitant]
     Active Substance: OMEPRAZOLE
  27. POTASSIUM [Concomitant]
     Active Substance: POTASSIUM
  28. EFFEXOR [Concomitant]
     Active Substance: VENLAFAXINE HYDROCHLORIDE
  29. ROCEPTIL [Concomitant]
  30. CLONIDINE. [Concomitant]
     Active Substance: CLONIDINE
  31. SYNTHROID [Concomitant]
     Active Substance: LEVOTHYROXINE SODIUM
  32. LEVOFLOXACIN. [Suspect]
     Active Substance: LEVOFLOXACIN
     Indication: PNEUMONIA
     Dates: start: 20151127
  33. CLONAZEPAM. [Concomitant]
     Active Substance: CLONAZEPAM
  34. FOLIC ACID. [Concomitant]
     Active Substance: FOLIC ACID
  35. NEURONTIN [Concomitant]
     Active Substance: GABAPENTIN
  36. NSAIDS [Concomitant]
     Active Substance: UNSPECIFIED INGREDIENT
  37. SULFA [Concomitant]
     Active Substance: UNSPECIFIED INGREDIENT
  38. FENTANYL. [Concomitant]
     Active Substance: FENTANYL

REACTIONS (8)
  - Nausea [None]
  - Middle insomnia [None]
  - Hypoaesthesia [None]
  - Malaise [None]
  - Pain [None]
  - Pneumonia [None]
  - Pulmonary mass [None]
  - Diarrhoea [None]

NARRATIVE: CASE EVENT DATE: 201511
